FAERS Safety Report 9314167 (Version 1)
Quarter: 2013Q2

REPORT INFORMATION
  Report Type: Spontaneous
  Country: FR (occurrence: FR)
  Receive Date: 20130529
  Receipt Date: 20130529
  Transmission Date: 20140414
  Serious: Yes (Death, Hospitalization)
  Sender: FDA-Public Use
  Company Number: FR-ACCORD-017810

PATIENT
  Age: 76 Year
  Sex: Female

DRUGS (2)
  1. CLOBETASOL PROPIONATE [Suspect]
     Indication: PEMPHIGOID
     Dosage: TOPICALCLOBETASOL PROPIONATE (TCP)
     Route: 061
  2. MYCOPHENOLATE MOFETIL [Suspect]
     Indication: PEMPHIGOID

REACTIONS (3)
  - Necrotising fasciitis [Unknown]
  - Septic shock [Fatal]
  - Off label use [Unknown]
